FAERS Safety Report 8399831-5 (Version None)
Quarter: 2012Q2

REPORT INFORMATION
  Report Type: 
  Country: None (occurrence: None)
  Receive Date: 20120531
  Receipt Date: 20120523
  Transmission Date: 20120825
  Serious: Yes (Other)
  Sender: FDA-Public Use
  Company Number: AT-PFIZER INC-2012128919

PATIENT
  Age: 83 Year
  Sex: Male

DRUGS (14)
  1. DOXAZOSIN [Concomitant]
     Dosage: UNK
  2. TAMSULOSIN HYDROCHLORIDE [Concomitant]
     Dosage: UNK
  3. SODIUM CHLORIDE [Concomitant]
     Dosage: UNK
  4. CYMBALTA [Suspect]
     Dosage: 30 MG, DAILY
     Dates: start: 20111130, end: 20111205
  5. ALPRAZOLAM [Concomitant]
     Dosage: UNK
  6. SERTRALINE [Concomitant]
     Dosage: UNK
  7. PANTOPRAZOLE SODIUM [Suspect]
     Dosage: 40 MG, DAILY
  8. SIMVASTATIN [Concomitant]
     Dosage: UNK
  9. AMLODIPINE [Concomitant]
     Dosage: UNK
  10. CIPROFLOXACIN [Concomitant]
     Dosage: UNK
  11. ASPIRIN [Concomitant]
     Dosage: UNK
  12. MOLAXOLE [Concomitant]
     Dosage: UNK
  13. LISINOPRIL AND HYDROCHLOROTHIAZIDE [Suspect]
     Dosage: 1 DF, DAILY
     Dates: end: 20111205
  14. CYMBALTA [Suspect]
     Dosage: 60 MG, DAILY
     Dates: start: 20111205

REACTIONS (2)
  - HYPONATRAEMIA [None]
  - HYPOKALAEMIA [None]
